FAERS Safety Report 6037068-5 (Version None)
Quarter: 2009Q1

REPORT INFORMATION
  Report Type: 
  Country: None (occurrence: None)
  Receive Date: 20090114
  Receipt Date: 20090112
  Transmission Date: 20090719
  Serious: Yes (Life-Threatening, Disabling)
  Sender: FDA-Public Use
  Company Number: BR-ASTRAZENECA-2008UW28102

PATIENT
  Age: 32 Year
  Sex: Female
  Weight: 62 kg

DRUGS (2)
  1. ZOLADEX [Suspect]
     Indication: ENDOMETRIOSIS
     Route: 058
     Dates: start: 20081112
  2. DIOSMIN [Concomitant]
     Indication: VARICOSE VEIN
     Dosage: DAILY
     Route: 048
     Dates: start: 20040101

REACTIONS (14)
  - ABDOMINAL DISTENSION [None]
  - ABDOMINAL PAIN [None]
  - APPLICATION SITE HAEMATOMA [None]
  - DECREASED APPETITE [None]
  - HALLUCINATION [None]
  - IRRITABILITY [None]
  - MALAISE [None]
  - NAUSEA [None]
  - PAIN [None]
  - PYREXIA [None]
  - SUICIDAL IDEATION [None]
  - SUICIDE ATTEMPT [None]
  - VARICOSE VEIN [None]
  - VOMITING [None]
